FAERS Safety Report 8209788-5 (Version None)
Quarter: 2012Q1

REPORT INFORMATION
  Report Type: 
  Country: None (occurrence: None)
  Receive Date: 20120314
  Receipt Date: 20120305
  Transmission Date: 20120608
  Serious: Yes (Other)
  Sender: FDA-Public Use
  Company Number: PT-FRI-1000029027

PATIENT
  Sex: Female

DRUGS (2)
  1. MEMANTINE [Suspect]
     Dosage: 20 MG
     Route: 048
     Dates: start: 20120101, end: 20120101
  2. MEMANTINE [Suspect]
     Dosage: 20 MG
     Route: 048
     Dates: start: 20120101

REACTIONS (1)
  - HEPATITIS TOXIC [None]
